FAERS Safety Report 8092539-5 (Version None)
Quarter: 2012Q1

REPORT INFORMATION
  Report Type: 
  Country: None (occurrence: None)
  Receive Date: 20120128
  Receipt Date: 20110827
  Transmission Date: 20120608
  Serious: No
  Sender: FDA-Public Use
  Company Number: US-ABBOTT-11P-163-0849810-00

PATIENT
  Age: 44 Year
  Sex: Female

DRUGS (3)
  1. IRON [Concomitant]
     Indication: ANAEMIA
  2. HUMIRA [Suspect]
     Indication: PSORIASIS
     Dates: start: 20110607
  3. LORATADINE [Concomitant]
     Indication: HYPERSENSITIVITY

REACTIONS (2)
  - BACTERIAL INFECTION [None]
  - INFLUENZA LIKE ILLNESS [None]
